FAERS Safety Report 9672029 (Version 3)
Quarter: 2014Q2

REPORT INFORMATION
  Report Type: Spontaneous
  Country: JP (occurrence: JP)
  Receive Date: 20131106
  Receipt Date: 20140411
  Transmission Date: 20141212
  Serious: Yes (Hospitalization)
  Sender: FDA-Public Use
  Company Number: JP-GLAXOSMITHKLINE-B0932661A

PATIENT
  Age: 29 None
  Sex: Female

DRUGS (13)
  1. LAMICTAL [Suspect]
     Indication: EPILEPSY
     Route: 048
     Dates: start: 201105, end: 20120524
  2. LAMICTAL [Suspect]
     Indication: EPILEPSY
     Dosage: 150MG TWICE PER DAY
     Route: 048
     Dates: start: 20120525, end: 20120527
  3. LAMICTAL [Suspect]
     Indication: EPILEPSY
     Dosage: 200MG TWICE PER DAY
     Route: 048
     Dates: start: 20120528, end: 20131010
  4. LAMICTAL [Suspect]
     Indication: EPILEPSY
     Dosage: 175MG TWICE PER DAY
     Route: 048
     Dates: start: 20131011, end: 20131030
  5. LAMICTAL [Suspect]
     Indication: EPILEPSY
     Dosage: 150MG TWICE PER DAY
     Route: 048
     Dates: start: 20131031, end: 20131111
  6. LAMICTAL [Suspect]
     Indication: EPILEPSY
     Dosage: 125MG TWICE PER DAY
     Route: 048
     Dates: start: 20131112
  7. E KEPPRA [Suspect]
     Indication: EPILEPSY
     Route: 048
     Dates: start: 20120710
  8. RISPERDAL [Suspect]
     Indication: EPILEPTIC PSYCHOSIS
     Route: 048
     Dates: start: 20120604
  9. RIVOTRIL [Suspect]
     Indication: PRODUCT USED FOR UNKNOWN INDICATION
     Route: 048
  10. SODIUM VALPROATE [Concomitant]
     Route: 048
     Dates: end: 201105
  11. ZONISAMIDE [Concomitant]
     Route: 048
     Dates: end: 20120529
  12. CLONAZEPAM [Concomitant]
     Dosage: .5MG PER DAY
     Route: 048
  13. CARBAMAZEPINE [Concomitant]
     Route: 048
     Dates: end: 20120629

REACTIONS (30)
  - Epilepsy [Recovering/Resolving]
  - Epileptic psychosis [Recovering/Resolving]
  - Partial seizures [Unknown]
  - Self injurious behaviour [Recovering/Resolving]
  - Convulsion [Unknown]
  - Treatment noncompliance [Unknown]
  - Speech disorder [Unknown]
  - Abnormal behaviour [Recovering/Resolving]
  - Impulsive behaviour [Recovering/Resolving]
  - Hypophagia [Recovering/Resolving]
  - Speech disorder [Recovering/Resolving]
  - Bradyphrenia [Recovering/Resolving]
  - Inappropriate affect [Recovering/Resolving]
  - Bradykinesia [Recovering/Resolving]
  - Anosognosia [Unknown]
  - Electroencephalogram abnormal [Unknown]
  - Spinal osteoarthritis [Unknown]
  - Constipation [Unknown]
  - Abnormal behaviour [Recovering/Resolving]
  - Tremor [Unknown]
  - Acne [Recovering/Resolving]
  - Rash [Unknown]
  - Hallucination [Recovering/Resolving]
  - Delusion [Recovering/Resolving]
  - Soliloquy [Not Recovered/Not Resolved]
  - Substance-induced psychotic disorder [Unknown]
  - Stress [Unknown]
  - Poriomania [Unknown]
  - Insomnia [Unknown]
  - Restlessness [Unknown]
